FAERS Safety Report 5611138-5 (Version None)
Quarter: 2008Q1

REPORT INFORMATION
  Report Type: 
  Country: None (occurrence: None)
  Receive Date: 20080201
  Receipt Date: 20080121
  Transmission Date: 20080703
  Serious: Yes (Death)
  Sender: FDA-Public Use
  Company Number: JP-GENENTECH-254964

PATIENT
  Sex: Male

DRUGS (4)
  1. BEVACIZUMAB [Suspect]
     Indication: RECTAL CANCER RECURRENT
     Dosage: 618 MG, UNK
     Route: 042
     Dates: start: 20060921
  2. OXALIPLATIN [Suspect]
     Indication: RECTAL CANCER RECURRENT
     Dosage: 142 MG, UNKNOWN
     Route: 042
     Dates: start: 20060921, end: 20071212
  3. FLUOROURACIL [Suspect]
     Indication: RECTAL CANCER RECURRENT
     Dosage: 669 MG, UNKNOWN
     Route: 042
     Dates: start: 20060921
  4. LEUCOVORIN CALCIUM [Suspect]
     Indication: RECTAL CANCER RECURRENT
     Dosage: 167 MG, UNK
     Route: 042
     Dates: start: 20060921

REACTIONS (2)
  - AORTIC ANEURYSM RUPTURE [None]
  - CARDIO-RESPIRATORY ARREST [None]
